FAERS Safety Report 5091327-1 (Version None)
Quarter: 2006Q3

REPORT INFORMATION
  Report Type: 
  Country: None (occurrence: None)
  Receive Date: 20060829
  Receipt Date: 20050823
  Transmission Date: 20061208
  Serious: No
  Sender: FDA-Public Use
  Company Number: US-GLAXOSMITHKLINE-A0571471A

PATIENT
  Sex: Male

DRUGS (4)
  1. BECONASE [Suspect]
     Dosage: 2SPR PER DAY
     Route: 045
     Dates: end: 20050801
  2. FLONASE [Suspect]
     Indication: DRUG USE FOR UNKNOWN INDICATION
     Route: 045
     Dates: start: 20050401
  3. CLARITIN [Concomitant]
  4. SONATA [Concomitant]

REACTIONS (4)
  - DYSPHONIA [None]
  - INSOMNIA [None]
  - LARYNGITIS [None]
  - PSYCHOMOTOR HYPERACTIVITY [None]
